FAERS Safety Report 4486115-0 (Version None)
Quarter: 2004Q4

REPORT INFORMATION
  Report Type: 
  Country: None (occurrence: None)
  Receive Date: 20041021
  Receipt Date: 20040930
  Transmission Date: 20050328
  Serious: Yes (Life-Threatening)
  Sender: FDA-Public Use
  Company Number: A01200404806

PATIENT
  Age: 76 Year
  Sex: Male

DRUGS (18)
  1. PLAVIX [Suspect]
     Dosage: 75 MG QD, ORAL
     Route: 048
     Dates: start: 20011229, end: 20020111
  2. LOSEC (OMEPRAZOLE) [Suspect]
     Indication: OESOPHAGEAL DISORDER
     Dosage: 40 MG QD
     Dates: start: 20011228, end: 20020112
  3. ENOXAPARIN SODIUM [Suspect]
     Dosage: 80 MG QD
     Dates: start: 20011230, end: 20011231
  4. (HEPARIN SODIUM) - SOLUTION [Suspect]
     Dosage: INTRAVENOUS NOS
     Route: 042
     Dates: start: 20011228, end: 20011230
  5. ASPIRIN [Concomitant]
  6. LIPITOR [Concomitant]
  7. MYLANTA [Concomitant]
  8. AUGMENTIN '125' [Concomitant]
  9. PRESSIN (PRAZOSIN HYDROCHLORIDE) [Concomitant]
  10. ANGININE (GLYCERYL TRINITRATE) [Concomitant]
  11. FENTANYL [Concomitant]
  12. FERGON (FERROUS GLUCONATE) [Concomitant]
  13. SODIUM POLYSTYRENE SULFONATE [Concomitant]
  14. CLAFORAN [Concomitant]
  15. KONAKION [Concomitant]
  16. UIREMIDE (FUROSEMIDE) [Concomitant]
  17. PEXSIG (PERHEXILINE MALEATE) [Concomitant]
  18. ISORDIL [Concomitant]

REACTIONS (2)
  - MULTI-ORGAN FAILURE [None]
  - THROMBOCYTOPENIA [None]
